FAERS Safety Report 14441094 (Version 14)
Quarter: 2018Q4

REPORT INFORMATION
  Report Type: Report from Study
  Country: DE (occurrence: DE)
  Receive Date: 20180125
  Receipt Date: 20181210
  Transmission Date: 20190204
  Serious: Yes (Hospitalization, Other)
  Sender: FDA-Public Use
  Company Number: DE-PFIZER INC-2017511539

PATIENT
  Age: 44 Year
  Sex: Female

DRUGS (24)
  1. FILGRASTIM [Suspect]
     Active Substance: FILGRASTIM
     Indication: HER-2 POSITIVE BREAST CANCER
     Dosage: 48 IU,DAY 2-4, DATE OF LAST DOSE PRIOR TO SAE: 06NOV2017
     Dates: start: 20170920, end: 20171012
  2. PREGABALIN. [Concomitant]
     Active Substance: PREGABALIN
     Indication: EPILEPSY
     Dosage: 350 MG, UNK
  3. PREGABALIN. [Concomitant]
     Active Substance: PREGABALIN
     Indication: NEURALGIA
     Dosage: 750 MG
     Dates: start: 20150630
  4. ZOPICLON [Concomitant]
     Active Substance: ZOPICLONE
     Indication: SLEEP DISORDER
     Dosage: 7.5 MG, INFUSION
     Dates: start: 20170915
  5. MIRTAZAPIN [Concomitant]
     Active Substance: MIRTAZAPINE
     Dosage: 30 MG, UNK
     Route: 065
  6. DOCETAXEL. [Suspect]
     Active Substance: DOCETAXEL
     Dosage: 75 MG/M2, Q3WK, LOADING DOSE (AS PER PROTOCOL), INFUSION
     Route: 042
     Dates: start: 20170920
  7. HERCEPTIN [Suspect]
     Active Substance: TRASTUZUMAB
     Dosage: 6 MG/KG, Q3W(MAINTENANCE DOSE (AS PER PROTOCOL) DATE OF LAST DOSE PRIOR TO SAE: 14DEC2017)
     Route: 042
  8. PERTUZUMAB. [Suspect]
     Active Substance: PERTUZUMAB
     Indication: HER-2 POSITIVE BREAST CANCER
     Dosage: 840 MG/KG, Q3W AS LOADING DOSE (DATE OF LAST DOSE PRIOR TO SAE: 14DEC2017)
     Route: 042
     Dates: start: 20170920
  9. MIRTAZAPIN [Concomitant]
     Active Substance: MIRTAZAPINE
     Indication: DEPRESSION
     Dosage: 15 MG, UNK
     Route: 065
     Dates: start: 20151115
  10. ZOPICLON [Concomitant]
     Active Substance: ZOPICLONE
     Dosage: 7.5 MG, QD (1 IN 1 D), INFUSION
     Dates: start: 20171115
  11. DOCETAXEL. [Suspect]
     Active Substance: DOCETAXEL
     Dosage: 35 MG/M2 (75 MG/M2, Q3WK, LOADING DOSE)
     Route: 042
     Dates: start: 20170920
  12. PERTUZUMAB. [Suspect]
     Active Substance: PERTUZUMAB
     Dosage: 420 MG/KG, Q3W, MAINTENANCE DOSE (AS PER PROTOCOL) (DATE OF LAST DOSE PRIOR TO SAE: 14DEC2017)
     Route: 042
     Dates: start: 20170920
  13. PREGABALIN. [Concomitant]
     Active Substance: PREGABALIN
     Indication: ANXIETY DISORDER
  14. ZOFRAN [Concomitant]
     Active Substance: ONDANSETRON HYDROCHLORIDE
     Indication: VOMITING
     Dosage: UNK
  15. PANTOPRAZOL [Concomitant]
     Active Substance: PANTOPRAZOLE SODIUM
     Dosage: 40 MG, UNK
     Dates: start: 20170920
  16. OXYCODON [Concomitant]
     Active Substance: OXYCODONE
     Dosage: 45 MG INFUSION
     Dates: start: 20180630
  17. DEXAMETHASON [Concomitant]
     Active Substance: DEXAMETHASONE
     Indication: INFLAMMATION
     Dosage: 4 MG, UNK, INFUSION
     Dates: start: 20171115
  18. ONDANSETRON A [Concomitant]
     Active Substance: ONDANSETRON HYDROCHLORIDE
     Indication: NAUSEA
  19. OXYCODON [Concomitant]
     Active Substance: OXYCODONE
     Indication: PAIN
     Dosage: 20 MG, UNK, INFUSION
  20. ZOFRAN [Concomitant]
     Active Substance: ONDANSETRON HYDROCHLORIDE
     Indication: NAUSEA
  21. DOCETAXEL. [Suspect]
     Active Substance: DOCETAXEL
     Indication: HER-2 POSITIVE BREAST CANCER
     Dosage: 25 MG/M2 FOR 3 TIMES A WEEK AS LOADING DOSE (AS PER PROTOCOL)
     Route: 042
     Dates: start: 20170920
  22. DOCETAXEL. [Suspect]
     Active Substance: DOCETAXEL
     Dosage: 25 MG/M2, Q3WK (MAINTENANCE DOSE (AS PER PROTOCOL) (DATE OF LAST DOSE PRIOR TO SAE: 14DEC2017)
     Route: 042
  23. HERCEPTIN [Suspect]
     Active Substance: TRASTUZUMAB
     Indication: HER-2 POSITIVE BREAST CANCER
     Dosage: 8 MG/KG, Q3W(LOADING DOSE (AS PER PROTOCOL))
     Route: 042
     Dates: start: 20170920
  24. ONDANSETRON A [Concomitant]
     Active Substance: ONDANSETRON HYDROCHLORIDE
     Indication: VOMITING
     Dosage: UNK (8-16 MG)
     Dates: start: 20171115

REACTIONS (8)
  - Fatigue [Not Recovered/Not Resolved]
  - Diarrhoea [Not Recovered/Not Resolved]
  - Stomatitis [Recovered/Resolved]
  - Polyneuropathy [Not Recovered/Not Resolved]
  - Dizziness [Recovered/Resolved]
  - Neutropenia [Recovered/Resolved]
  - Anaemia [Recovered/Resolved]
  - Thrombocytopenia [Recovered/Resolved]

NARRATIVE: CASE EVENT DATE: 20170920
